FAERS Safety Report 9444587 (Version 2)
Quarter: 2013Q3

REPORT INFORMATION
  Report Type: Spontaneous
  Country: US (occurrence: US)
  Receive Date: 20130807
  Receipt Date: 20130917
  Transmission Date: 20140515
  Serious: No
  Sender: FDA-Public Use
  Company Number: US-PFIZER INC-2013228277

PATIENT
  Age: 54 Year
  Sex: Female
  Weight: 88.44 kg

DRUGS (4)
  1. NEURONTIN [Suspect]
     Indication: NEUROPATHY PERIPHERAL
     Dosage: 600 MG, 4X/DAY
     Route: 048
  2. METFORMIN [Concomitant]
     Indication: DIABETES MELLITUS
     Dosage: UNK
  3. GLIPIZIDE [Concomitant]
     Dosage: UNK
  4. OXYCODONE [Concomitant]
     Indication: PAIN
     Dosage: UNK

REACTIONS (5)
  - Drug dose omission [Unknown]
  - Off label use [Unknown]
  - Pain [Unknown]
  - Sensory loss [Unknown]
  - Musculoskeletal discomfort [Unknown]
